FAERS Safety Report 6862628-9 (Version None)
Quarter: 2010Q2

REPORT INFORMATION
  Report Type: 
  Country: None (occurrence: None)
  Receive Date: 20100528
  Receipt Date: 20091105
  Transmission Date: 20101027
  Serious: Yes (Hospitalization)
  Sender: FDA-Public Use
  Company Number: CIP09001980

PATIENT
  Age: 60 Year
  Sex: Female
  Weight: 59.2 kg

DRUGS (6)
  1. ACTONEL [Suspect]
     Dosage: 150 MG ONCE MONTHLY, ORAL
     Route: 048
     Dates: start: 20090720
  2. ST. JOSEPH ASPIRIN (ACETYLSALICYLIC ACID) [Concomitant]
  3. CALTRATE + D /00944201/ (CALCIUM CARBONATE, COLECALCIFEROL) [Concomitant]
  4. COZAAR [Concomitant]
  5. PRAVACHOL [Concomitant]
  6. CENTRUM /00554501/ (MINERALS NOS, VITAMINS NOS) [Concomitant]

REACTIONS (16)
  - ABDOMINAL PAIN UPPER [None]
  - ATELECTASIS [None]
  - BACK PAIN [None]
  - CONSTIPATION [None]
  - DRUG HYPERSENSITIVITY [None]
  - DYSGEUSIA [None]
  - DYSPEPSIA [None]
  - FAECALOMA [None]
  - HYPERHIDROSIS [None]
  - INTERVERTEBRAL DISC PROTRUSION [None]
  - MOBILITY DECREASED [None]
  - MUSCLE SPASMS [None]
  - NAUSEA [None]
  - SCIATICA [None]
  - SPINAL OSTEOARTHRITIS [None]
  - VOMITING [None]
